FAERS Safety Report 5720159-3 (Version None)
Quarter: 2008Q2

REPORT INFORMATION
  Report Type: 
  Country: None (occurrence: None)
  Receive Date: 20080423
  Receipt Date: 20070808
  Transmission Date: 20081010
  Serious: Yes (Hospitalization, Other)
  Sender: FDA-Public Use
  Company Number: 243843

PATIENT
  Age: 24 Year
  Sex: Female

DRUGS (5)
  1. AVASTIN [Suspect]
     Indication: BREAST CANCER
     Dosage: 10 MG/KG, QOW, INTRAVENOUS
     Route: 042
  2. GEMZAR [Concomitant]
  3. CARBOPLATIN [Concomitant]
  4. ZOMETA [Concomitant]
  5. DARBEPOETIN ALFA (DARBEPOETIN ALFA) [Concomitant]

REACTIONS (1)
  - DEEP VEIN THROMBOSIS [None]
